FAERS Safety Report 8313281-9 (Version None)
Quarter: 2012Q2

REPORT INFORMATION
  Report Type: 
  Country: None (occurrence: None)
  Receive Date: 20120426
  Receipt Date: 20120418
  Transmission Date: 20120825
  Serious: Yes (Hospitalization, Other)
  Sender: FDA-Public Use
  Company Number: US-BAYER-2012-017039

PATIENT
  Age: 38 Year
  Sex: Female
  Weight: 120.18 kg

DRUGS (8)
  1. DROSPIRENONE AND ETHINYL ESTRADIOL [Suspect]
     Indication: CONTRACEPTION
     Dosage: UNK
     Dates: start: 20080701, end: 20100701
  2. SYNTHROID [Concomitant]
     Indication: HYPOTHYROIDISM
     Dosage: UNK UNK, QD
     Route: 048
     Dates: start: 19910101
  3. TYLENOL (CAPLET) [Concomitant]
     Indication: HEADACHE
     Dosage: 500 MG, PRN
  4. VITAMIN D [Concomitant]
     Dosage: 50000 U, BID
     Route: 048
  5. CELEXA [Concomitant]
     Indication: ANXIETY
     Dosage: 10 MG, QD
     Dates: start: 20020101
  6. YASMIN [Suspect]
     Indication: CONTRACEPTION
     Dosage: UNK
     Dates: start: 20051201, end: 20080601
  7. HYDROCODONE BITARTRATE + ACETAMINOPHEN [Concomitant]
  8. VITAMIN D [Concomitant]
     Indication: VITAMIN D DECREASED
     Dosage: UNK

REACTIONS (4)
  - DEEP VEIN THROMBOSIS [None]
  - THROMBOSIS [None]
  - PULMONARY EMBOLISM [None]
  - MENTAL DISORDER [None]
